FAERS Safety Report 6523056 (Version 24)
Quarter: 2013Q4

REPORT INFORMATION
  Report Type: Spontaneous
  Country: US (occurrence: US)
  Receive Date: 20080110
  Receipt Date: 20131217
  Transmission Date: 20140711
  Serious: Yes (Death, Other)
  Sender: FDA-Public Use
  Company Number: PHEH2008US00481

PATIENT
  Age: 75 Year
  Sex: Male

DRUGS (33)
  1. AREDIA [Suspect]
     Route: 042
     Dates: start: 2000
  2. ZOMETA [Suspect]
     Route: 042
  3. ANTICOAGULANTS [Concomitant]
  4. PROSCAR [Concomitant]
     Route: 048
  5. QUININE SULFATE [Concomitant]
     Route: 048
  6. CEPHALEXIN [Concomitant]
     Route: 048
  7. LEVAQUIN [Concomitant]
  8. ATORVASTATIN [Concomitant]
  9. CELEBREX [Concomitant]
  10. CALCIUM [Concomitant]
  11. CYMBALTA [Concomitant]
  12. GABAPENTIN [Concomitant]
  13. TINZAPARIN SODIUM [Concomitant]
  14. INSULIN [Concomitant]
  15. THALOMID [Concomitant]
  16. LEUKINE [Concomitant]
  17. CALCITRIOL [Concomitant]
  18. CYCLOPHOSPHAMIDE [Concomitant]
  19. NEXIUM [Concomitant]
  20. MICRO-K [Concomitant]
  21. VIAGRA [Concomitant]
  22. REQUIP [Concomitant]
  23. VIVELLE-DOT [Concomitant]
     Dosage: 0.1 MG, QD
     Route: 062
  24. PROVIGIL [Concomitant]
  25. LIDODERM [Concomitant]
     Route: 062
  26. FLEXERIL [Concomitant]
     Dosage: 5 MG, QD
     Route: 048
  27. AMOXICILLIN [Concomitant]
  28. FINASTERIDE [Concomitant]
  29. LIPITOR                                 /NET/ [Concomitant]
  30. REVLIMID [Concomitant]
  31. MICRO K EXTENCAPS [Concomitant]
  32. AVODART [Concomitant]
  33. LUPRON [Concomitant]

REACTIONS (114)
  - Death [Fatal]
  - Venous thrombosis [Unknown]
  - Benign gastric neoplasm [Unknown]
  - Depression [Unknown]
  - Agranulocytosis [Unknown]
  - Osteonecrosis of jaw [Unknown]
  - Pain [Unknown]
  - Mental disorder [Unknown]
  - Metastases to skin [Unknown]
  - Metastases to bone [Unknown]
  - Renal failure [Unknown]
  - Renal impairment [Unknown]
  - Syncope [Unknown]
  - Sinus arrhythmia [Unknown]
  - Ventricular tachycardia [Unknown]
  - Supraventricular extrasystoles [Unknown]
  - Ischaemia [Unknown]
  - Sick sinus syndrome [Unknown]
  - Bradycardia [Unknown]
  - Squamous cell carcinoma [Unknown]
  - Second primary malignancy [Unknown]
  - Basal cell carcinoma [Unknown]
  - Intervertebral disc degeneration [Unknown]
  - Atrial fibrillation [Unknown]
  - Malignant melanoma in situ [Unknown]
  - Cholelithiasis [Unknown]
  - Cataract [Unknown]
  - Haematuria [Unknown]
  - Arthralgia [Unknown]
  - Chest pain [Unknown]
  - Osteoporosis [Unknown]
  - Ligament sprain [Unknown]
  - Hypersomnia [Unknown]
  - Sleep apnoea syndrome [Unknown]
  - Fatigue [Unknown]
  - Anaemia [Unknown]
  - Malaise [Unknown]
  - Scoliosis [Unknown]
  - Toothache [Unknown]
  - Tooth abscess [Unknown]
  - Joint dislocation [Unknown]
  - Intervertebral disc space narrowing [Unknown]
  - Spinal disorder [Unknown]
  - Ligament laxity [Unknown]
  - Neuropathy peripheral [Unknown]
  - Erectile dysfunction [Unknown]
  - Hypogonadism [Unknown]
  - Kyphosis [Unknown]
  - Hot flush [Unknown]
  - Constipation [Unknown]
  - Arthritis [Unknown]
  - Contusion [Unknown]
  - Sleep disorder due to general medical condition, insomnia type [Unknown]
  - Muscle spasms [Unknown]
  - Chronic obstructive pulmonary disease [Unknown]
  - Pulmonary fibrosis [Unknown]
  - Atelectasis [Unknown]
  - Hepatic cyst [Unknown]
  - Breast mass [Unknown]
  - Metastases to lymph nodes [Unknown]
  - Affective disorder [Unknown]
  - Osteoarthritis [Unknown]
  - Bradyarrhythmia [Unknown]
  - Hypertensive heart disease [Unknown]
  - Folliculitis [Unknown]
  - Anxiety [Unknown]
  - Gastric ulcer [Unknown]
  - Dizziness [Unknown]
  - Pulmonary mass [Unknown]
  - Bundle branch block right [Unknown]
  - Osteosclerosis [Unknown]
  - Neck pain [Unknown]
  - Left ventricular hypertrophy [Unknown]
  - Left atrial dilatation [Unknown]
  - Pulmonary valve incompetence [Unknown]
  - Tricuspid valve incompetence [Unknown]
  - Prostate cancer metastatic [Unknown]
  - Tooth loss [Unknown]
  - Loose tooth [Unknown]
  - Dental plaque [Unknown]
  - Mouth haemorrhage [Unknown]
  - Bone loss [Unknown]
  - Accident [Unknown]
  - Laceration [Unknown]
  - Cardiomegaly [Unknown]
  - Arteriosclerosis coronary artery [Unknown]
  - Pulmonary hypertension [Unknown]
  - Umbilical hernia [Unknown]
  - Lymphadenopathy [Unknown]
  - Bladder diverticulum [Unknown]
  - Vascular calcification [Unknown]
  - Aortic stenosis [Unknown]
  - Lung neoplasm malignant [Unknown]
  - Atrioventricular block first degree [Unknown]
  - Osteopenia [Unknown]
  - Emphysema [Unknown]
  - Renal cyst [Unknown]
  - Restless legs syndrome [Unknown]
  - Deafness [Unknown]
  - Tinnitus [Unknown]
  - Nail discolouration [Unknown]
  - Nail dystrophy [Unknown]
  - Gastritis [Unknown]
  - Diverticulum [Unknown]
  - Aortic valve incompetence [Unknown]
  - Coronary artery stenosis [Unknown]
  - Mitral valve incompetence [Unknown]
  - Weight decreased [Unknown]
  - Oedema peripheral [Unknown]
  - Dyslipidaemia [Unknown]
  - Cardiac murmur [Unknown]
  - Pleural effusion [Unknown]
  - Atrial flutter [Unknown]
  - Gastric dilatation [Unknown]
